FAERS Safety Report 6956477-0 (Version None)
Quarter: 2010Q3

REPORT INFORMATION
  Report Type: 
  Country: None (occurrence: None)
  Receive Date: 20100830
  Receipt Date: 20100820
  Transmission Date: 20110219
  Serious: Yes (Hospitalization)
  Sender: FDA-Public Use
  Company Number: US-AMGEN-QUU429280

PATIENT
  Age: 48 Year
  Sex: Female
  Weight: 71 kg

DRUGS (4)
  1. NEULASTA [Suspect]
     Indication: CHEMOTHERAPY
     Route: 058
     Dates: start: 20100721, end: 20100721
  2. CYTOXAN [Suspect]
     Route: 042
     Dates: start: 20100720, end: 20100720
  3. ADRIAMYCIN PFS [Concomitant]
     Route: 042
     Dates: start: 20100720, end: 20100720
  4. TAXOTERE [Concomitant]
     Route: 042
     Dates: start: 20100720, end: 20100720

REACTIONS (2)
  - DIARRHOEA [None]
  - NEUTROPENIA [None]
